FAERS Safety Report 24555414 (Version 1)
Quarter: 2024Q4

REPORT INFORMATION
  Report Type: Spontaneous
  Country: BR (occurrence: BR)
  Receive Date: 20241028
  Receipt Date: 20241028
  Transmission Date: 20250115
  Serious: Yes (Hospitalization)
  Sender: ELI LILLY AND COMPANY
  Company Number: BR-ELI_LILLY_AND_COMPANY-BR202409015962

PATIENT
  Sex: Female

DRUGS (4)
  1. BASAGLAR [Suspect]
     Active Substance: INSULIN GLARGINE
     Indication: Product used for unknown indication
     Dosage: 8 U, DAILY
     Route: 065
  2. BASAGLAR [Suspect]
     Active Substance: INSULIN GLARGINE
     Dosage: 8 U, BID (8 IN THE MORNING, AND 8 AFTER 12 HOURS)
     Route: 065
  3. METICORTEN [Suspect]
     Active Substance: PREDNISONE
     Indication: Pneumonia
     Dosage: UNK UNK, UNKNOWN
     Route: 065
  4. CORTISONE [Suspect]
     Active Substance: CORTISONE
     Indication: Pneumonia
     Dosage: UNK UNK, UNKNOWN
     Route: 065

REACTIONS (11)
  - Pneumonia [Recovered/Resolved]
  - Blood glucose increased [Unknown]
  - Inappropriate schedule of product administration [Unknown]
  - Nervous system disorder [Unknown]
  - Gait disturbance [Unknown]
  - Nervousness [Unknown]
  - Hunger [Unknown]
  - Asthenia [Unknown]
  - Irritability [Unknown]
  - Procedural pain [Unknown]
  - Visual impairment [Unknown]

NARRATIVE: CASE EVENT DATE: 20230101
